FAERS Safety Report 8458369-7 (Version None)
Quarter: 2012Q2

REPORT INFORMATION
  Report Type: 
  Country: None (occurrence: None)
  Receive Date: 20120615
  Receipt Date: 20120601
  Transmission Date: 20120825
  Serious: Yes (Hospitalization)
  Sender: FDA-Public Use
  Company Number: TCI2012A02899

PATIENT
  Age: 76 Year
  Sex: Female

DRUGS (8)
  1. METFORMIN HYDROCHLORIDE [Concomitant]
  2. LOXONIN (LOXOPROFEN SODIUM) [Concomitant]
  3. PREVPAC [Suspect]
     Indication: HELICOBACTER TEST POSITIVE
     Dosage: 1 CARD (0.5 CARD,2 IN 1 D) PER ORAL
     Route: 048
     Dates: start: 20120519, end: 20120519
  4. AMARYL [Concomitant]
  5. MIYA-BM (CLOSTRIDIUM BUTYRICUM) [Concomitant]
  6. EVISTA [Concomitant]
  7. MAGMITT (MAGNESIUM OXIDE) [Concomitant]
  8. SELBEX (TEPRENONE) [Concomitant]

REACTIONS (2)
  - RHABDOMYOLYSIS [None]
  - ABASIA [None]
